FAERS Safety Report 5052576-1 (Version None)
Quarter: 2006Q3

REPORT INFORMATION
  Report Type: 
  Country: None (occurrence: None)
  Receive Date: 20060717
  Receipt Date: 20060206
  Transmission Date: 20061208
  Serious: Yes (Death)
  Sender: FDA-Public Use
  Company Number: 2005JP002169

PATIENT
  Age: 79 Year
  Sex: Male

DRUGS (16)
  1. CEFAZOLIN [Suspect]
     Indication: INFECTION PROPHYLAXIS
     Dosage: 1G TWICE PER DAY
     Route: 042
     Dates: start: 20050708, end: 20050710
  2. PHENOBAL [Suspect]
     Indication: CONVULSION
     Dosage: 45MG TWICE PER DAY
     Route: 048
     Dates: start: 20050612, end: 20050714
  3. ADALAT [Concomitant]
     Dates: start: 20050705, end: 20050718
  4. HERBESSER [Concomitant]
     Dates: start: 20050705, end: 20050718
  5. ISOSORBIDE MONONITRATE [Concomitant]
     Dates: start: 20050705, end: 20050718
  6. PREDONINE [Concomitant]
     Dates: start: 20060714
  7. VANCOMYCIN [Concomitant]
  8. FERROMIA [Concomitant]
     Dates: start: 20050624, end: 20050714
  9. CINAL [Concomitant]
     Dates: start: 20050624, end: 20050714
  10. ARTIST [Concomitant]
     Dates: start: 20050610, end: 20050705
  11. GASTER [Concomitant]
     Dates: start: 20050610, end: 20050718
  12. LIPITOR [Concomitant]
     Dates: start: 20050610, end: 20050718
  13. SIGMART [Concomitant]
     Dates: start: 20050610, end: 20050718
  14. GLYCERYL TRINITRATE [Concomitant]
     Dates: start: 20050610, end: 20050714
  15. MAGLAX [Concomitant]
     Dates: start: 20050610, end: 20050714
  16. ASPIRIN [Concomitant]
     Dates: start: 20050705, end: 20050718

REACTIONS (8)
  - ERYTHEMA [None]
  - EYE DISORDER [None]
  - ILL-DEFINED DISORDER [None]
  - PYREXIA [None]
  - RASH [None]
  - SEPSIS [None]
  - STAPHYLOCOCCAL INFECTION [None]
  - TOXIC EPIDERMAL NECROLYSIS [None]
